FAERS Safety Report 5780459-8 (Version None)
Quarter: 2008Q2

REPORT INFORMATION
  Report Type: 
  Country: None (occurrence: None)
  Receive Date: 20080620
  Receipt Date: 20080617
  Transmission Date: 20081010
  Serious: Yes (Death, Hospitalization)
  Sender: FDA-Public Use
  Company Number: US-BAYER-200822781NA

PATIENT
  Sex: Male

DRUGS (4)
  1. SORAFENIB [Suspect]
     Indication: RENAL CELL CARCINOMA
     Dosage: TOTAL DAILY DOSE: 800 MG  UNIT DOSE: 200 MG
     Route: 048
     Dates: start: 20060101, end: 20060622
  2. SYNTHROID [Concomitant]
  3. ARANESP [Concomitant]
  4. NEXIUM [Concomitant]

REACTIONS (2)
  - CONDITION AGGRAVATED [None]
  - METASTATIC RENAL CELL CARCINOMA [None]
